FAERS Safety Report 5275984-2 (Version None)
Quarter: 2007Q1

REPORT INFORMATION
  Report Type: 
  Country: None (occurrence: None)
  Receive Date: 20061219
  Receipt Date: 20061012
  Transmission Date: 20070707
  Serious: Yes (Hospitalization, Other)
  Sender: FDA-Public Use
  Company Number: US-JNJFOC-20060900903

PATIENT
  Age: 46 Year
  Sex: Female
  Weight: 127.7 kg

DRUGS (5)
  1. ORTHO EVRA [Suspect]
     Indication: CONTRACEPTION
     Dosage: TRANSDERMAL
     Route: 062
     Dates: start: 20030301, end: 20041001
  2. ALBUTEROL [Concomitant]
  3. PROVENTIL (SALBUTAMOL) [Concomitant]
  4. SYNTHROID [Concomitant]
  5. EFFEXOR [Concomitant]

REACTIONS (4)
  - CELLULITIS [None]
  - DEEP VEIN THROMBOSIS [None]
  - PHLEBITIS SUPERFICIAL [None]
  - PULMONARY EMBOLISM [None]
